FAERS Safety Report 25760793 (Version 1)
Quarter: 2025Q3

REPORT INFORMATION
  Report Type: Report from Study
  Country: US (occurrence: US)
  Receive Date: 20250904
  Receipt Date: 20250904
  Transmission Date: 20251020
  Serious: Yes (Other)
  Sender: PFIZER
  Company Number: US-PFIZER INC-202500174871

PATIENT
  Sex: Female

DRUGS (1)
  1. DOXORUBICIN HYDROCHLORIDE [Suspect]
     Active Substance: DOXORUBICIN HYDROCHLORIDE
     Indication: Endometrial cancer recurrent

REACTIONS (5)
  - Performance status decreased [Unknown]
  - Mucosal inflammation [Unknown]
  - Rash maculo-papular [Unknown]
  - Diarrhoea [Unknown]
  - Nausea [Unknown]
